FAERS Safety Report 21300313 (Version 1)
Quarter: 2022Q3

REPORT INFORMATION
  Report Type: Spontaneous
  Country: RO (occurrence: RO)
  Receive Date: 20220907
  Receipt Date: 20220907
  Transmission Date: 20221026
  Serious: Yes (Hospitalization)
  Sender: FDA-Public Use
  Company Number: RO-AMGEN-ROUSP2022150153

PATIENT
  Sex: Male

DRUGS (2)
  1. VECTIBIX [Suspect]
     Active Substance: PANITUMUMAB
     Indication: Colon neoplasm
     Dosage: UNK
     Route: 065
  2. ENTRECTINIB [Concomitant]
     Active Substance: ENTRECTINIB
     Indication: Colon neoplasm
     Dosage: UNK
     Route: 065

REACTIONS (4)
  - Dyspnoea exertional [Recovered/Resolved]
  - Diarrhoea [Recovered/Resolved]
  - Abdominal pain [Recovered/Resolved]
  - Asthenia [Recovered/Resolved]
